FAERS Safety Report 20577893 (Version 2)
Quarter: 2022Q1

REPORT INFORMATION
  Report Type: Spontaneous
  Country: US (occurrence: US)
  Receive Date: 20220310
  Receipt Date: 20220318
  Transmission Date: 20220423
  Serious: Yes (Other)
  Sender: FDA-Public Use
  Company Number: US-NOVARTISTESTPH-NVSC2022US053825

PATIENT
  Age: 70 Year
  Sex: Male

DRUGS (7)
  1. DOCETAXEL [Suspect]
     Active Substance: DOCETAXEL
     Indication: Prostate cancer metastatic
     Dosage: UNK, Q3W
     Route: 042
     Dates: start: 20200715, end: 20210910
  2. ABIRATERONE [Suspect]
     Active Substance: ABIRATERONE
     Indication: Prostate cancer metastatic
     Dosage: UNK, QD
     Route: 048
     Dates: start: 20160617, end: 20191223
  3. ENZALUTAMIDE [Suspect]
     Active Substance: ENZALUTAMIDE
     Indication: Prostate cancer metastatic
     Dosage: 160 MG, QD
     Route: 048
     Dates: start: 20191227, end: 20200416
  4. OLAPARIB [Suspect]
     Active Substance: OLAPARIB
     Indication: Prostate cancer metastatic
     Dosage: 300 MG, BID
     Route: 048
     Dates: start: 20200421, end: 20200629
  5. CABAZITAXEL [Suspect]
     Active Substance: CABAZITAXEL
     Indication: Product used for unknown indication
     Dosage: UNK
     Route: 065
  6. IPATASERTIB [Concomitant]
     Active Substance: IPATASERTIB
     Indication: Prostate cancer metastatic
     Dosage: 400 MG, QD
     Route: 048
     Dates: start: 20220103, end: 20220224
  7. ATEZOLIZUMAB [Concomitant]
     Active Substance: ATEZOLIZUMAB
     Indication: Prostate cancer metastatic
     Dosage: 1200 MG, Q3W
     Route: 042
     Dates: start: 20220103, end: 20220224

REACTIONS (6)
  - Metastatic neoplasm [Not Recovered/Not Resolved]
  - Prostate cancer metastatic [Not Recovered/Not Resolved]
  - Malignant neoplasm progression [Not Recovered/Not Resolved]
  - Fatigue [Unknown]
  - Toxicity to various agents [Not Recovered/Not Resolved]
  - Lymphadenopathy [Unknown]

NARRATIVE: CASE EVENT DATE: 20200715
